FAERS Safety Report 6811846-4 (Version None)
Quarter: 2010Q3

REPORT INFORMATION
  Report Type: 
  Country: None (occurrence: None)
  Receive Date: 20100701
  Receipt Date: 20100618
  Transmission Date: 20110219
  Serious: Yes (Hospitalization, Other)
  Sender: FDA-Public Use
  Company Number: PHHY2010DE38538

PATIENT
  Age: 32 Year
  Sex: Female

DRUGS (9)
  1. SANDIMMUNE [Suspect]
     Indication: RENAL TRANSPLANT
     Dosage: 400 MG/DAY
     Route: 048
     Dates: start: 20080115
  2. CIPROFLOXACIN HCL [Suspect]
     Indication: URINARY TRACT INFECTION
     Dosage: 1000MG
     Route: 048
     Dates: start: 20090807, end: 20090808
  3. ZIENAM [Suspect]
     Indication: ESCHERICHIA URINARY TRACT INFECTION
     Dosage: 1500 MG
     Route: 042
     Dates: start: 20090808, end: 20090821
  4. CELLCEPT [Suspect]
     Indication: RENAL TRANSPLANT
     Dosage: 1500MG
     Route: 048
     Dates: start: 20080115
  5. DECORTIN [Concomitant]
     Indication: RENAL TRANSPLANT
     Dosage: 5 MG
     Route: 048
     Dates: start: 20080115
  6. PANTOZOL [Concomitant]
     Indication: GASTRIC ULCER
     Dosage: 40 MG
     Route: 048
     Dates: start: 20080101
  7. CALCIMAGON-D3 [Concomitant]
     Indication: OSTEOPOROSIS PROPHYLAXIS
     Dosage: 1 DF
     Route: 048
     Dates: start: 20080101
  8. LEVOTHYROXINE SODIUM [Concomitant]
     Indication: HYPOTHYROIDISM
     Dosage: 25 UG
     Route: 048
     Dates: start: 20030101
  9. TOREM [Concomitant]
     Indication: HYPERTENSION
     Dosage: 2.5 MG
     Route: 048
     Dates: start: 20080101

REACTIONS (13)
  - ANURIA [None]
  - C-REACTIVE PROTEIN DECREASED [None]
  - DIARRHOEA [None]
  - ESCHERICHIA INFECTION [None]
  - GASTROENTERITIS CLOSTRIDIAL [None]
  - NAUSEA [None]
  - POLLAKIURIA [None]
  - PYREXIA [None]
  - REFLUX NEPHROPATHY [None]
  - RENAL FAILURE ACUTE [None]
  - URINARY TRACT INFECTION [None]
  - UROSEPSIS [None]
  - VOMITING [None]
